FAERS Safety Report 8936669 (Version 2)
Quarter: 2013Q1

REPORT INFORMATION
  Report Type: Spontaneous
  Country: FR (occurrence: FR)
  Receive Date: 20121130
  Receipt Date: 20130107
  Transmission Date: 20140127
  Serious: Yes (Hospitalization)
  Sender: FDA-Public Use
  Company Number: FR-ROCHE-1159649

PATIENT
  Sex: Male
  Weight: 80 kg

DRUGS (1)
  1. ZELBORAF [Suspect]
     Indication: METASTATIC MALIGNANT MELANOMA
     Route: 048
     Dates: start: 20121005, end: 20121120

REACTIONS (2)
  - Dermatitis exfoliative [Recovering/Resolving]
  - Skin exfoliation [Recovering/Resolving]
